FAERS Safety Report 9532174 (Version 1)
Quarter: 2013Q2

REPORT INFORMATION
  Report Type: Spontaneous
  Country: US (occurrence: None)
  Receive Date: 20130503
  Receipt Date: 20130503
  Transmission Date: 20140414
  Serious: No
  Sender: FDA-Public Use
  Company Number: 1000042896

PATIENT
  Age: 74 Year
  Sex: Female

DRUGS (7)
  1. DALIRESP (ROFLUMILAST) (500 MICROGRAM, TABLETS) [Suspect]
     Indication: CHRONIC OBSTRUCTIVE PULMONARY DISEASE
     Dosage: 500 MCG (500 MCG, 1 IN 1 D, ORAL
     Route: 048
     Dates: start: 201301
  2. ADVAIR (SERETIDE) (SERETIDE) [Concomitant]
  3. CRESTOR (ROSUVASTATIN CALCIUM) (ROSUVASTATIN CALCIUM [Concomitant]
  4. METFORMIN (METFORMIN) (METFORMIN) [Concomitant]
  5. CLONIDINE (CLONIDINE) (CLONIDINE) [Concomitant]
  6. DIOVAN (VALSARTAN) (VALSARTAN) [Concomitant]
  7. SPIRONOLACTONE (SPIRONOLACTONE) (SPIRONOLACTONE) [Concomitant]

REACTIONS (3)
  - Nausea [None]
  - Decreased appetite [None]
  - Weight decreased [None]
